FAERS Safety Report 21315555 (Version 1)
Quarter: 2022Q3

REPORT INFORMATION
  Report Type: Spontaneous
  Country: IT (occurrence: IT)
  Receive Date: 20220909
  Receipt Date: 20220909
  Transmission Date: 20221026
  Serious: Yes (Death, Other)
  Sender: FDA-Public Use
  Company Number: IT-JAZZ-2022-IT-028677

PATIENT
  Age: 65 Year
  Sex: Female

DRUGS (1)
  1. VYXEOS [Suspect]
     Active Substance: CYTARABINE\DAUNORUBICIN
     Indication: Acute myeloid leukaemia
     Dosage: (DAY 1, 3 AND 5)
     Dates: start: 20201010

REACTIONS (7)
  - Acute myeloid leukaemia recurrent [Fatal]
  - Febrile neutropenia [Recovered/Resolved]
  - Febrile neutropenia [Recovered/Resolved]
  - Vaginal haemorrhage [Recovered/Resolved]
  - Epistaxis [Recovered/Resolved]
  - Escherichia test positive [Unknown]
  - Off label use [Unknown]

NARRATIVE: CASE EVENT DATE: 20200101
